FAERS Safety Report 5171711-8 (Version None)
Quarter: 2006Q4

REPORT INFORMATION
  Report Type: 
  Country: None (occurrence: None)
  Receive Date: 20061213
  Receipt Date: 20061130
  Transmission Date: 20070319
  Serious: Yes (Other)
  Sender: FDA-Public Use
  Company Number: US-BRISTOL-MYERS SQUIBB COMPANY-13604699

PATIENT

DRUGS (2)
  1. REYATAZ [Suspect]
  2. MEPRON [Concomitant]

REACTIONS (4)
  - EOSINOPHILIA [None]
  - HEPATITIS CHOLESTATIC [None]
  - PYREXIA [None]
  - RASH [None]
